FAERS Safety Report 15334729 (Version 1)
Quarter: 2018Q3

REPORT INFORMATION
  Report Type: Spontaneous
  Country: SI (occurrence: SI)
  Receive Date: 20180830
  Receipt Date: 20180830
  Transmission Date: 20181010
  Serious: Yes (Other)
  Sender: FDA-Public Use
  Company Number: SI-BRISTOL-MYERS SQUIBB COMPANY-BMS-2018-079996

PATIENT
  Age: 76 Year
  Sex: Female

DRUGS (2)
  1. INSULATARD                         /00646002/ [Suspect]
     Active Substance: INSULIN HUMAN
     Indication: TYPE 2 DIABETES MELLITUS
     Dosage: 2X 20 U DAILY
     Route: 065
  2. GLUCOPHAGE [Suspect]
     Active Substance: METFORMIN HYDROCHLORIDE
     Indication: TYPE 2 DIABETES MELLITUS
     Dosage: 1000 MG, QD
     Route: 065

REACTIONS (4)
  - Neuropathy peripheral [Unknown]
  - Blood pressure inadequately controlled [Unknown]
  - Diabetes mellitus inadequate control [Unknown]
  - Weight increased [Unknown]
